FAERS Safety Report 8155987-0 (Version None)
Quarter: 2012Q1

REPORT INFORMATION
  Report Type: 
  Country: None (occurrence: None)
  Receive Date: 20120222
  Receipt Date: 20120207
  Transmission Date: 20120608
  Serious: Yes (Death)
  Sender: FDA-Public Use
  Company Number: PT-ASTELLAS-2012US001887

PATIENT
  Sex: Male

DRUGS (1)
  1. AMBISOME [Suspect]
     Indication: ZYGOMYCOSIS
     Dosage: UNK
     Route: 065

REACTIONS (1)
  - DRUG INEFFECTIVE FOR UNAPPROVED INDICATION [None]
